FAERS Safety Report 7817193-6 (Version None)
Quarter: 2011Q4

REPORT INFORMATION
  Report Type: 
  Country: None (occurrence: None)
  Receive Date: 20111017
  Receipt Date: 20111017
  Transmission Date: 20120403
  Serious: Yes (Other)
  Sender: FDA-Public Use
  Company Number: None

PATIENT
  Sex: Female
  Weight: 104.32 kg

DRUGS (1)
  1. MIRENA [Suspect]
     Indication: CONTRACEPTION
     Dates: start: 20090721, end: 20110401

REACTIONS (6)
  - NO THERAPEUTIC RESPONSE [None]
  - INFERTILITY FEMALE [None]
  - NEOPLASM MALIGNANT [None]
  - PAIN [None]
  - HAEMORRHAGE [None]
  - AMENORRHOEA [None]
